FAERS Safety Report 10153554 (Version 1)
Quarter: 2014Q2

REPORT INFORMATION
  Report Type: Spontaneous
  Country: FR (occurrence: FR)
  Receive Date: 20140505
  Receipt Date: 20140505
  Transmission Date: 20141212
  Serious: Yes (Hospitalization)
  Sender: FDA-Public Use
  Company Number: PHHY2014FR052927

PATIENT
  Age: 56 Year
  Sex: Male

DRUGS (5)
  1. VOLTARENE [Suspect]
     Indication: BACK PAIN
     Dosage: 75 MG, UNK
     Route: 048
  2. ASPIRIN [Concomitant]
     Dosage: 75 MG, UNK
  3. ASPIRIN [Concomitant]
     Dosage: 90 MG, UNK
  4. KARDEGIC [Concomitant]
     Dosage: 75 MG, UNK
     Route: 048
     Dates: start: 201304
  5. DOLIPRANE [Concomitant]
     Dosage: UNK UKN, UNK
     Dates: start: 201304

REACTIONS (8)
  - Loss of consciousness [Recovered/Resolved]
  - Scrotal oedema [Recovered/Resolved]
  - Swollen tongue [Recovered/Resolved]
  - Erythema [Recovered/Resolved]
  - Pruritus [Recovered/Resolved]
  - Dyspnoea [Recovered/Resolved]
  - Malaise [Recovered/Resolved]
  - Anaphylactic reaction [Recovered/Resolved]
